FAERS Safety Report 23078787 (Version 1)
Quarter: 2023Q4

REPORT INFORMATION
  Report Type: Spontaneous
  Country: DE (occurrence: DE)
  Receive Date: 20231018
  Receipt Date: 20231018
  Transmission Date: 20240110
  Serious: Yes (Hospitalization)
  Sender: FDA-Public Use
  Company Number: None

PATIENT
  Age: 69 Year
  Sex: Female
  Weight: 60 kg

DRUGS (9)
  1. PACLITAXEL [Suspect]
     Active Substance: PACLITAXEL
     Indication: Fallopian tube cancer
     Dosage: IN 500ML NACL 0.9% OVER 3H
     Dates: start: 20230913
  2. RAMIPRIL [Concomitant]
     Active Substance: RAMIPRIL
     Indication: Hypertension
     Dosage: 1-0-0
  3. DIMETHINDENE MALEATE [Concomitant]
     Active Substance: DIMETHINDENE MALEATE
     Indication: Antiallergic therapy
     Dosage: ONE TIME IN 100ML NACL 0.9%
     Dates: start: 20230913
  4. ROSUVASTATIN [Concomitant]
     Active Substance: ROSUVASTATIN
     Indication: Hypercholesterolaemia
     Dosage: 1-0-0
  5. ENOXAPARIN [Concomitant]
     Active Substance: ENOXAPARIN
     Indication: Thrombosis prophylaxis
     Dosage: 0-0-1
     Dates: start: 20230813
  6. GRANISETRON [Concomitant]
     Active Substance: GRANISETRON
     Indication: Prophylaxis of nausea and vomiting
     Dosage: ONE TIME IN 100ML NACL 0.9%
     Dates: start: 20230913
  7. DEXTROSE [Concomitant]
     Active Substance: DEXTROSE\DEXTROSE MONOHYDRATE
     Dosage: UNIQUE
     Dates: start: 20230913
  8. DEXAMETHASONE [Concomitant]
     Active Substance: DEXAMETHASONE
     Indication: Chemotherapy side effect prophylaxis
     Dosage: ONE TIME IN 100ML NACL 0.9%
     Dates: start: 20230913
  9. CARBOPLATIN [Concomitant]
     Active Substance: CARBOPLATIN
     Indication: Metastases to peritoneum
     Dosage: ONCE WAS STARTED ONLY AFTER COMPLETION OF THE PACLITAXEL INFUSION
     Dates: start: 20230913

REACTIONS (4)
  - Blood pressure increased [Recovered/Resolved]
  - Dysgeusia [Recovered/Resolved]
  - Flushing [Recovered/Resolved]
  - Ventricular extrasystoles [Unknown]

NARRATIVE: CASE EVENT DATE: 20230913
